FAERS Safety Report 16874406 (Version 1)
Quarter: 2019Q4

REPORT INFORMATION
  Report Type: Spontaneous
  Country: FR (occurrence: FR)
  Receive Date: 20191001
  Receipt Date: 20191001
  Transmission Date: 20200122
  Serious: Yes (Life-Threatening, Hospitalization)
  Sender: FDA-Public Use
  Company Number: FR-MYLANLABS-2019M1091622

PATIENT
  Age: 37 Year
  Sex: Female
  Weight: 85 kg

DRUGS (3)
  1. OLUMIANT [Concomitant]
     Active Substance: BARICITINIB
     Indication: DERMATOMYOSITIS
     Dosage: 4 MILLIGRAM, QD
     Route: 048
     Dates: start: 201902, end: 20190417
  2. CELLCEPT [Concomitant]
     Active Substance: MYCOPHENOLATE MOFETIL\MYCOPHENOLATE MOFETIL HYDROCHLORIDE
     Indication: DERMATOMYOSITIS
     Dosage: 3 GRAM, QD
     Route: 048
     Dates: start: 201803, end: 20190417
  3. IBUPROFEN. [Suspect]
     Active Substance: IBUPROFEN
     Indication: HEADACHE
     Dosage: UNK
     Route: 048
     Dates: start: 20190416, end: 20190416

REACTIONS (1)
  - Septic shock [Recovered/Resolved]

NARRATIVE: CASE EVENT DATE: 20190417
